FAERS Safety Report 8746159 (Version 2)
Quarter: 2012Q4

REPORT INFORMATION
  Report Type: 
  Country: JP (occurrence: JP)
  Receive Date: 20120827
  Receipt Date: 20120924
  Transmission Date: 20130627
  Serious: Yes (Hospitalization)
  Sender: FDA-Public Use
  Company Number: PHHY2012JP073093

PATIENT
  Age: 78 Year
  Sex: Male
  Weight: 166 kg

DRUGS (6)
  1. FAMVIR [Suspect]
     Indication: HERPES ZOSTER
     Dosage: 500 mg, TID
     Route: 048
     Dates: start: 20120809, end: 20120810
  2. LYRICA [Suspect]
     Indication: HERPES ZOSTER
     Dosage: 150 mg per day
     Route: 048
     Dates: start: 20120809, end: 20120810
  3. SORELMON [Suspect]
     Indication: HERPES ZOSTER
     Dosage: 25 mg, TID
     Route: 048
     Dates: start: 20120809, end: 20120810
  4. NEUROTROPIN [Suspect]
     Route: 048
     Dates: end: 20120810
  5. COBAMAMIDE [Suspect]
     Indication: HERPES ZOSTER
     Dosage: 2 DF, BID
     Route: 048
     Dates: start: 20120809, end: 20120810
  6. VITAMIN B12 [Concomitant]
     Dosage: 2 DF,
     Route: 048
     Dates: start: 20120809, end: 20120810

REACTIONS (6)
  - Renal failure acute [Recovered/Resolved]
  - Loss of consciousness [Recovered/Resolved]
  - Haemoglobin decreased [Unknown]
  - Haematocrit decreased [Unknown]
  - White blood cell count increased [None]
  - Blood uric acid increased [None]
